FAERS Safety Report 9228531 (Version 1)
Quarter: 2013Q2

REPORT INFORMATION
  Report Type: Report from Study
  Country: US (occurrence: US)
  Receive Date: 20130412
  Receipt Date: 20130412
  Transmission Date: 20140414
  Serious: Yes (Hospitalization)
  Sender: FDA-Public Use
  Company Number: US-ABBOTT-13P-163-1072489-00

PATIENT
  Age: 34 Year
  Sex: Female

DRUGS (5)
  1. HUMIRA [Suspect]
     Indication: COLITIS ULCERATIVE
     Dates: start: 20130125
  2. AZATHIOPRINE [Concomitant]
     Indication: COLITIS ULCERATIVE
     Dosage: 50 MG THREE TABLETS DAILY
  3. LIALDA [Concomitant]
     Indication: COLITIS ULCERATIVE
     Dosage: 2.5 MG TWO TABS DAILY
  4. BIFERA [Concomitant]
     Indication: BLOOD IRON DECREASED
     Dosage: 25 MG DAILY
  5. VITAMIN D3 [Concomitant]
     Indication: VITAMIN D DEFICIENCY
     Dosage: 5000 IU DAILY

REACTIONS (3)
  - Malnutrition [Recovering/Resolving]
  - Colitis ulcerative [Unknown]
  - Full blood count decreased [Recovering/Resolving]
